FAERS Safety Report 4326568-1 (Version None)
Quarter: 2004Q1

REPORT INFORMATION
  Report Type: 
  Country: None (occurrence: None)
  Receive Date: 20040325
  Receipt Date: 20031201
  Transmission Date: 20041129
  Serious: Yes (Hospitalization)
  Sender: FDA-Public Use
  Company Number: US058787

PATIENT
  Age: 64 Year
  Sex: Female

DRUGS (3)
  1. NEULASTA [Suspect]
     Indication: CHEMOTHERAPY
     Dosage: AFTER CHEMO
     Dates: start: 20031121, end: 20031121
  2. CYCLOPHOSPHAMIDE [Concomitant]
  3. DOXORUBICIN HYDROCHLORIDE [Concomitant]

REACTIONS (1)
  - FEBRILE NEUTROPENIA [None]
